FAERS Safety Report 5119168-7 (Version None)
Quarter: 2006Q3

REPORT INFORMATION
  Report Type: 
  Country: None (occurrence: None)
  Receive Date: 20060929
  Receipt Date: 20060929
  Transmission Date: 20061208
  Serious: Yes (Life-Threatening, Other)
  Sender: FDA-Public Use
  Company Number: None

PATIENT
  Age: 28 Year
  Sex: Female
  Weight: 68.0396 kg

DRUGS (1)
  1. LEVAQUIN [Suspect]
     Indication: URINARY TRACT INFECTION
     Dosage: 1 750MG TABLET   1 DAILY  PO
     Route: 048
     Dates: start: 20060926, end: 20060928

REACTIONS (7)
  - ABNORMAL BEHAVIOUR [None]
  - FEELING ABNORMAL [None]
  - INSOMNIA [None]
  - PANIC ATTACK [None]
  - SCREAMING [None]
  - SELF-INJURIOUS IDEATION [None]
  - THINKING ABNORMAL [None]
